FAERS Safety Report 5188406-7 (Version None)
Quarter: 2006Q4

REPORT INFORMATION
  Report Type: 
  Country: None (occurrence: None)
  Receive Date: 20061221
  Receipt Date: 20051214
  Transmission Date: 20070319
  Serious: Yes (Other)
  Sender: FDA-Public Use
  Company Number: JP-SHR-JP-2005-027270

PATIENT
  Age: 27 Year
  Sex: Female

DRUGS (1)
  1. MIRENA [Suspect]
     Indication: CONTRACEPTION
     Dosage: 20 A?G/DAY, CONT
     Route: 015
     Dates: start: 20031030

REACTIONS (7)
  - ABDOMINAL PAIN LOWER [None]
  - AMENORRHOEA [None]
  - FEELING HOT [None]
  - HYPERTRICHOSIS [None]
  - MOOD ALTERED [None]
  - VARICOSE VEIN [None]
  - WEIGHT INCREASED [None]
